FAERS Safety Report 7485899-7 (Version None)
Quarter: 2011Q2

REPORT INFORMATION
  Report Type: 
  Country: None (occurrence: None)
  Receive Date: 20110517
  Receipt Date: 20110121
  Transmission Date: 20111010
  Serious: Yes (Other)
  Sender: FDA-Public Use
  Company Number: US-BAYER-2011-021231

PATIENT
  Age: 26 Year
  Sex: Female

DRUGS (2)
  1. YAZ [Suspect]
     Indication: CONTRACEPTION
     Route: 048
  2. YASMIN [Suspect]
     Indication: CONTRACEPTION
     Route: 048

REACTIONS (6)
  - CHEST PAIN [None]
  - ABDOMINAL PAIN [None]
  - BILIARY COLIC [None]
  - VOMITING [None]
  - CHOLELITHIASIS [None]
  - CHOLECYSTITIS CHRONIC [None]
